FAERS Safety Report 19650081 (Version 1)
Quarter: 2021Q3

REPORT INFORMATION
  Report Type: Spontaneous
  Country: ES (occurrence: ES)
  Receive Date: 20210802
  Receipt Date: 20210802
  Transmission Date: 20211014
  Serious: Yes (Other)
  Sender: FDA-Public Use
  Company Number: ES-ANIPHARMA-2021-ES-000088

PATIENT
  Age: 9 Month
  Sex: Male

DRUGS (1)
  1. CORTICOTROPIN (NON?SPECIFIC) [Suspect]
     Active Substance: CORTICOTROPIN
     Indication: INFANTILE SPASMS
     Dosage: MAXIMUM OF 0.5 MG DAILY

REACTIONS (3)
  - Cardiac steatosis [Recovered/Resolved]
  - Blood pressure increased [Recovered/Resolved]
  - Cushing^s syndrome [Recovered/Resolved]
